FAERS Safety Report 11870991 (Version 1)
Quarter: 2015Q4

REPORT INFORMATION
  Report Type: Spontaneous
  Country: US (occurrence: None)
  Receive Date: 20151224
  Receipt Date: 20151224
  Transmission Date: 20160305
  Serious: Yes (Hospitalization)
  Sender: FDA-Public Use
  Company Number: None

PATIENT
  Age: 22 Year
  Sex: Male

DRUGS (10)
  1. SULFAMETHOXAZOLE/TRIMETHOPRIM [Suspect]
     Active Substance: SULFAMETHOXAZOLE\TRIMETHOPRIM
     Indication: PNEUMONIA
     Dosage: 2 DOUBLE STRENGTH TABLETS
     Route: 048
     Dates: start: 20150803, end: 20150812
  2. ESCITALOPRAM [Concomitant]
     Active Substance: ESCITALOPRAM OXALATE
  3. GUAIFENESIN-CODEINE [Concomitant]
  4. SENNA [Concomitant]
     Active Substance: SENNA LEAF\SENNOSIDES\SENNOSIDES A AND B
  5. DOCUSATE [Concomitant]
     Active Substance: DOCUSATE
  6. ALBUTEROL. [Concomitant]
     Active Substance: ALBUTEROL
  7. ONDANSETRON [Concomitant]
     Active Substance: ONDANSETRON
  8. INSULIN ASPART [Concomitant]
     Active Substance: INSULIN ASPART
  9. ENOXAPARIN [Concomitant]
     Active Substance: ENOXAPARIN
  10. PREDNISONE. [Concomitant]
     Active Substance: PREDNISONE

REACTIONS (5)
  - Pyrexia [None]
  - Pneumonia [None]
  - Dyspnoea [None]
  - Rash [None]
  - Cough [None]

NARRATIVE: CASE EVENT DATE: 20150812
